FAERS Safety Report 8417588-6 (Version None)
Quarter: 2012Q2

REPORT INFORMATION
  Report Type: 
  Country: None (occurrence: None)
  Receive Date: 20120606
  Receipt Date: 20120522
  Transmission Date: 20120825
  Serious: Yes (Other)
  Sender: FDA-Public Use
  Company Number: CHPA2012US011464

PATIENT
  Sex: Female

DRUGS (2)
  1. BENEFIBER W/ WHEAT DEXTRIN [Suspect]
     Indication: BOWEL MOVEMENT IRREGULARITY
     Dosage: 3 TSP, QD
     Route: 048
  2. BENEFIBER W/ WHEAT DEXTRIN [Suspect]
     Dosage: 2 TSP, QD
     Route: 048

REACTIONS (6)
  - OFF LABEL USE [None]
  - INCORRECT DOSE ADMINISTERED [None]
  - IRRITABLE BOWEL SYNDROME [None]
  - VIRAL INFECTION [None]
  - VOMITING [None]
  - DIARRHOEA [None]
